FAERS Safety Report 5132418-6 (Version None)
Quarter: 2006Q4

REPORT INFORMATION
  Report Type: 
  Country: None (occurrence: None)
  Receive Date: 20061023
  Receipt Date: 20061011
  Transmission Date: 20070319
  Serious: Yes (Other)
  Sender: FDA-Public Use
  Company Number: PHBS2006BR16035

PATIENT
  Age: 26 Year
  Sex: Female
  Weight: 61 kg

DRUGS (3)
  1. VOLTAREN [Suspect]
     Indication: RENAL PAIN
     Dosage: 75 MG, UNK
     Route: 042
  2. BUSCOPAN COMP. [Suspect]
     Indication: BACK PAIN
     Route: 042
  3. METICORTEN [Concomitant]
     Indication: SYSTEMIC LUPUS ERYTHEMATOSUS
     Dosage: 10 MG/DAY
     Route: 048

REACTIONS (7)
  - BLINDNESS [None]
  - CHEST PAIN [None]
  - DRY MOUTH [None]
  - INJECTION SITE PAIN [None]
  - MEDICATION ERROR [None]
  - WRONG DRUG ADMINISTERED [None]
  - WRONG TECHNIQUE IN DRUG USAGE PROCESS [None]
